FAERS Safety Report 7048124-7 (Version None)
Quarter: 2010Q4

REPORT INFORMATION
  Report Type: 
  Country: None (occurrence: None)
  Receive Date: 20101015
  Receipt Date: 20101004
  Transmission Date: 20110411
  Serious: Yes (Other)
  Sender: FDA-Public Use
  Company Number: US-ELI_LILLY_AND_COMPANY-US201010001294

PATIENT
  Sex: Male

DRUGS (3)
  1. HUMULIN 70/30 [Suspect]
  2. HUMALOG MIX 75/25 [Suspect]
  3. HUMALOG [Suspect]

REACTIONS (3)
  - BLINDNESS UNILATERAL [None]
  - BLOOD GLUCOSE FLUCTUATION [None]
  - DRUG INEFFECTIVE [None]
